FAERS Safety Report 17112312 (Version 1)
Quarter: 2019Q4

REPORT INFORMATION
  Report Type: Spontaneous
  Country: US (occurrence: US)
  Receive Date: 20191111
  Receipt Date: 20191111
  Transmission Date: 20200122
  Serious: Yes (Death, Hospitalization)
  Sender: FDA-Public Use
  Company Number: None

PATIENT
  Age: 78 Year
  Sex: Male
  Weight: 86.18 kg

DRUGS (10)
  1. VITAMIN D [Concomitant]
     Active Substance: VITAMIN D NOS
  2. OMEPRAZOLE. [Concomitant]
     Active Substance: OMEPRAZOLE
  3. FUROSEMIDE. [Concomitant]
     Active Substance: FUROSEMIDE
  4. TAMSULOSIN [Concomitant]
     Active Substance: TAMSULOSIN
  5. CRESTOR [Concomitant]
     Active Substance: ROSUVASTATIN CALCIUM
  6. AMIODARONE HCL 200MG [Suspect]
     Active Substance: AMIODARONE HYDROCHLORIDE
     Indication: ATRIAL FIBRILLATION
     Dosage: ?          QUANTITY:1 DF DOSAGE FORM;?
     Route: 048
     Dates: start: 20190621
  7. ELIQUIS [Concomitant]
     Active Substance: APIXABAN
  8. GUAIFENSIN [Concomitant]
     Active Substance: GUAIFENESIN
  9. COREG [Concomitant]
     Active Substance: CARVEDILOL
  10. LYRICA [Concomitant]
     Active Substance: PREGABALIN

REACTIONS (4)
  - Central nervous system lymphoma [None]
  - Atrial fibrillation [None]
  - Dysstasia [None]
  - Cardiac failure [None]

NARRATIVE: CASE EVENT DATE: 20190621
